FAERS Safety Report 4386424-X (Version None)
Quarter: 2004Q2

REPORT INFORMATION
  Report Type: 
  Country: None (occurrence: None)
  Receive Date: 20040626
  Receipt Date: 20040614
  Transmission Date: 20050107
  Serious: No
  Sender: FDA-Public Use
  Company Number: 2004GB01412

PATIENT
  Age: 43 Year
  Sex: Male

DRUGS (8)
  1. CRESTOR [Suspect]
     Indication: BLOOD CHOLESTEROL INCREASED
     Dosage: 20 MG DAILY PO
     Route: 048
     Dates: start: 20040504, end: 20040514
  2. AMLODIPINE [Concomitant]
  3. OMEPRAZOLE [Concomitant]
  4. LISINOPRIL [Concomitant]
  5. ATENOLOL [Concomitant]
  6. NICORANDIL [Concomitant]
  7. ASPIRIN [Concomitant]
  8. BEZALIP-MONO [Concomitant]

REACTIONS (4)
  - HYPOAESTHESIA [None]
  - MYALGIA [None]
  - NAUSEA [None]
  - SCLERAL DISCOLOURATION [None]
